FAERS Safety Report 8187577-8 (Version None)
Quarter: 2012Q1

REPORT INFORMATION
  Report Type: 
  Country: None (occurrence: None)
  Receive Date: 20120306
  Receipt Date: 20120301
  Transmission Date: 20120608
  Serious: Yes (Death, Other)
  Sender: FDA-Public Use
  Company Number: PHHY2012US017992

PATIENT
  Age: 45 Year
  Sex: Female

DRUGS (1)
  1. METOCLOPRAMIDE [Suspect]
     Indication: NAUSEA
     Dosage: UNK UKN, UNK

REACTIONS (17)
  - HYPOXIA [None]
  - CONDITION AGGRAVATED [None]
  - RENAL FAILURE [None]
  - HYPERTENSION [None]
  - RESPIRATORY FAILURE [None]
  - RESPIRATORY ACIDOSIS [None]
  - AORTIC RUPTURE [None]
  - HYPERHIDROSIS [None]
  - HYPOTENSION [None]
  - HAEMORRHAGE [None]
  - COAGULOPATHY [None]
  - CARDIOGENIC SHOCK [None]
  - HEPATIC FAILURE [None]
  - PHAEOCHROMOCYTOMA [None]
  - HYPERPYREXIA [None]
  - STRESS CARDIOMYOPATHY [None]
  - TACHYCARDIA [None]
